FAERS Safety Report 14567936 (Version 2)
Quarter: 2018Q1

REPORT INFORMATION
  Report Type: Spontaneous
  Country: PL (occurrence: PL)
  Receive Date: 20180223
  Receipt Date: 20180321
  Transmission Date: 20180509
  Serious: Yes (Hospitalization, Other)
  Sender: FDA-Public Use
  Company Number: PL-PFIZER INC-2018074305

PATIENT
  Age: 63 Year
  Sex: Female

DRUGS (3)
  1. SUNITINIB MALATE. [Suspect]
     Active Substance: SUNITINIB MALATE
     Dosage: 25 MG, 1X/DAY, 4WEEKS/6 WEEKS
     Dates: end: 201512
  2. SUNITINIB MALATE. [Suspect]
     Active Substance: SUNITINIB MALATE
     Indication: RENAL CELL CARCINOMA
     Dosage: 50 MG, 1X/DAY, 4 WEEKS /6 WEEKS
     Route: 048
     Dates: start: 201111
  3. SUNITINIB MALATE. [Suspect]
     Active Substance: SUNITINIB MALATE
     Dosage: 25 MG, 1X/DAY, 4/6 WEEKS
     Dates: start: 201602

REACTIONS (6)
  - Anaemia megaloblastic [Unknown]
  - Anaemia [Unknown]
  - Electrolyte imbalance [Recovering/Resolving]
  - Diarrhoea [Unknown]
  - Hypothyroidism [Unknown]
  - Hyperthyroidism [Unknown]

NARRATIVE: CASE EVENT DATE: 2011
